FAERS Safety Report 4757692-7 (Version None)
Quarter: 2005Q3

REPORT INFORMATION
  Report Type: 
  Country: None (occurrence: None)
  Receive Date: 20050831
  Receipt Date: 20050829
  Transmission Date: 20060218
  Serious: Yes (Other)
  Sender: FDA-Public Use
  Company Number: DE-GLAXOSMITHKLINE-D0047398A

PATIENT
  Age: 68 Year
  Sex: Female

DRUGS (1)
  1. QUILONUM RETARD [Suspect]
     Route: 048
     Dates: start: 19960101

REACTIONS (2)
  - MUSCLE TIGHTNESS [None]
  - PSORIASIS [None]
